FAERS Safety Report 7350529-1 (Version None)
Quarter: 2011Q1

REPORT INFORMATION
  Report Type: 
  Country: None (occurrence: None)
  Receive Date: 20110309
  Receipt Date: 20110309
  Transmission Date: 20110831
  Serious: Yes (Other)
  Sender: FDA-Public Use
  Company Number: None

PATIENT
  Age: 59 Year
  Sex: Female
  Weight: 56.246 kg

DRUGS (1)
  1. ALENDRONATE [Suspect]
     Indication: OSTEOPOROSIS
     Dosage: ONCE A WEEK
     Dates: start: 20071101, end: 20101105

REACTIONS (2)
  - PAIN IN JAW [None]
  - ARTHRALGIA [None]
